FAERS Safety Report 10339792 (Version 1)
Quarter: 2014Q3

REPORT INFORMATION
  Report Type: Spontaneous
  Country: US (occurrence: None)
  Receive Date: 20140723
  Receipt Date: 20140723
  Transmission Date: 20150326
  Serious: Yes (Hospitalization)
  Sender: FDA-Public Use
  Company Number: None

PATIENT
  Age: 47 Year
  Sex: Male
  Weight: 85.2 kg

DRUGS (3)
  1. METHADONE [Concomitant]
     Active Substance: METHADONE HYDROCHLORIDE
  2. HYDROMORPHONE [Concomitant]
     Active Substance: HYDROMORPHONE
  3. KETAMINE [Suspect]
     Active Substance: KETAMINE
     Indication: PAIN
     Dosage: HOURLY
     Route: 042
     Dates: start: 20140720, end: 20140720

REACTIONS (3)
  - Acute psychosis [None]
  - Aggression [None]
  - Agitation [None]

NARRATIVE: CASE EVENT DATE: 20140720
